FAERS Safety Report 24282023 (Version 2)
Quarter: 2025Q4

REPORT INFORMATION
  Report Type: Spontaneous
  Country: EU (occurrence: EU)
  Receive Date: 20240904
  Receipt Date: 20251105
  Transmission Date: 20260117
  Serious: Yes (Life-Threatening, Other)
  Sender: PFIZER
  Company Number: EU-HALEON-2193682

PATIENT

DRUGS (15)
  1. METHOTREXATE SODIUM [Suspect]
     Active Substance: METHOTREXATE SODIUM
     Indication: Central nervous system lymphoma
     Dosage: FREQ:2 WK;2.5 MG, EVERY 2 WEEKS (CYCLE 5)
  2. METHOTREXATE SODIUM [Suspect]
     Active Substance: METHOTREXATE SODIUM
     Dosage: FREQ:2 WK;4000 MG/M2, EVERY 2 WEEKS (CYCLE 5)
     Route: 042
  3. METHOTREXATE SODIUM [Suspect]
     Active Substance: METHOTREXATE SODIUM
     Dosage: 2.5 MG, EVERY 3 WEEKS (CYCLE 4+6)
  4. METHOTREXATE SODIUM [Suspect]
     Active Substance: METHOTREXATE SODIUM
     Dosage: FREQ:2 WK;4000 MG/M2, EVERY 2 WEEKS (CYCLE 1-3)
     Route: 042
  5. RITUXIMAB [Suspect]
     Active Substance: RITUXIMAB
     Indication: Central nervous system lymphoma
     Dosage: FREQ:2 WK;375 MG/M2, EVERY 2 WEEKS (CYCLE 1-3)
     Route: 042
  6. GRANULOCYTE COLONY-STIMULATING FACTOR NOS [Suspect]
     Active Substance: GRANULOCYTE COLONY-STIMULATING FACTOR NOS
     Indication: Prophylaxis
     Dosage: UNK, AT EACH CYCLE
  7. IFOSFAMIDE [Suspect]
     Active Substance: IFOSFAMIDE
     Indication: Central nervous system lymphoma
     Dosage: FREQ:2 WK;800 MG/M2, EVERY 2 WEEKS (CYCLE 1-3)
     Route: 042
  8. IFOSFAMIDE [Suspect]
     Active Substance: IFOSFAMIDE
     Dosage: FREQ:2 WK;800 MG/M2, EVERY 2 WEEKS (CYCLE 5)
     Route: 042
  9. CYTARABINE [Suspect]
     Active Substance: CYTARABINE
     Indication: Central nervous system lymphoma
     Dosage: 10 MG, EVERY 3 WEEKS (CYCLE 4+6)
  10. CYTARABINE [Suspect]
     Active Substance: CYTARABINE
     Dosage: FREQ:2 WK;10 MG, EVERY 2 WEEKS (CYCLE 5)
  11. CYTARABINE [Suspect]
     Active Substance: CYTARABINE
     Dosage: 3000 MG/M2, EVERY 3 WEEKS (CYCLE 4+6)
     Route: 042
  12. SULFAMETHOXAZOLE\TRIMETHOPRIM [Suspect]
     Active Substance: SULFAMETHOXAZOLE\TRIMETHOPRIM
     Dosage: UNK, AT EACH CYCLE
  13. ACYCLOVIR [Suspect]
     Active Substance: ACYCLOVIR
     Dosage: UNK, AT EACH CYCLE
  14. PREDNISOLONE [Suspect]
     Active Substance: PREDNISOLONE
     Indication: Central nervous system lymphoma
     Dosage: FREQ:2 WK;3 MG, EVERY 2 WEEKS (CYCLE 5) VIA INTRACEREBROVENTICULAR ROUTE (ICV)
  15. PREDNISOLONE [Suspect]
     Active Substance: PREDNISOLONE
     Dosage: 3 MG, EVERY 3 WEEKS (CYCLE 4+6) VIA INTRACEREBROVENTICULAR ROUTE (ICV)

REACTIONS (1)
  - Blood potassium decreased [Unknown]
